FAERS Safety Report 8387501-9 (Version None)
Quarter: 2012Q2

REPORT INFORMATION
  Report Type: 
  Country: None (occurrence: None)
  Receive Date: 20120525
  Receipt Date: 20120518
  Transmission Date: 20120825
  Serious: Yes (Death)
  Sender: FDA-Public Use
  Company Number: PHHY2008JP23787

PATIENT
  Sex: Male
  Weight: 67 kg

DRUGS (8)
  1. EXJADE [Suspect]
     Indication: IRON OVERLOAD
     Dosage: 500 MG, DAILY
     Route: 048
     Dates: start: 20080724, end: 20080807
  2. HYDREA [Concomitant]
     Indication: MYELOFIBROSIS
     Dosage: 500 MG, UNK
     Route: 048
     Dates: start: 20080501
  3. NIZATIDINE [Concomitant]
     Dosage: 150 MG, UNK
     Route: 048
     Dates: start: 20060201
  4. EXJADE [Suspect]
     Indication: MYELODYSPLASTIC SYNDROME
  5. PREDNISOLONE [Concomitant]
     Indication: MYELOFIBROSIS
     Dosage: 20 MG, UNK
     Route: 048
     Dates: start: 20070807
  6. DESFERAL [Suspect]
     Indication: IRON OVERLOAD
     Dosage: 500 MG, DAILY
     Dates: start: 20060301, end: 20080701
  7. MAGMITT [Concomitant]
     Dosage: 660 MG, UNK
     Route: 048
     Dates: start: 20060201
  8. ANTEBATE [Concomitant]
     Route: 061
     Dates: start: 20080125

REACTIONS (3)
  - PRURITUS [None]
  - RASH [None]
  - MENINGITIS BACTERIAL [None]
